FAERS Safety Report 8399262-8 (Version None)
Quarter: 2012Q2

REPORT INFORMATION
  Report Type: 
  Country: None (occurrence: None)
  Receive Date: 20120531
  Receipt Date: 20120530
  Transmission Date: 20120825
  Serious: Yes (Other)
  Sender: FDA-Public Use
  Company Number: GB-GLAXOSMITHKLINE-B0792674A

PATIENT
  Sex: Female

DRUGS (9)
  1. RAMIPRIL [Concomitant]
  2. ADCAL [Concomitant]
  3. FERROUS FUMARATE [Concomitant]
  4. BISOPROLOL FUMARATE [Concomitant]
  5. WARFARIN SODIUM [Concomitant]
  6. CLOBETASOL PROPIONATE [Suspect]
     Indication: PRODUCT USED FOR UNKNOWN INDICATION
     Route: 065
  7. PROLIA [Suspect]
     Indication: OSTEOPOROSIS POSTMENOPAUSAL
     Route: 065
     Dates: start: 20120213
  8. FUROSEMIDE [Concomitant]
  9. LANSOPRAZOLE [Concomitant]

REACTIONS (1)
  - CELLULITIS [None]
